FAERS Safety Report 22299467 (Version 2)
Quarter: 2023Q2

REPORT INFORMATION
  Report Type: Spontaneous
  Country: US (occurrence: US)
  Receive Date: 20230509
  Receipt Date: 20230518
  Transmission Date: 20230721
  Serious: No
  Sender: FDA-Public Use
  Company Number: US-PFIZER INC-202300177950

PATIENT
  Sex: Female

DRUGS (2)
  1. PAXLOVID [Suspect]
     Active Substance: NIRMATRELVIR\RITONAVIR
     Indication: COVID-19 treatment
     Dosage: TOOK ONE DOSE PACK ON SATURDAY NIGHT AND ONE PACK SUNDAY MORNING
     Dates: start: 20230429, end: 20230430
  2. ZITHROMAX [Concomitant]
     Active Substance: AZITHROMYCIN DIHYDRATE
     Dosage: UNK
     Dates: start: 20230501

REACTIONS (9)
  - Dysgeusia [Unknown]
  - Dry mouth [Unknown]
  - Headache [Unknown]
  - Asthenia [Unknown]
  - Nasal congestion [Not Recovered/Not Resolved]
  - Speech disorder [Unknown]
  - Pyrexia [Recovered/Resolved]
  - Cough [Recovered/Resolved]
  - Fatigue [Not Recovered/Not Resolved]
